FAERS Safety Report 6475836-6 (Version None)
Quarter: 2009Q4

REPORT INFORMATION
  Report Type: 
  Country: None (occurrence: None)
  Receive Date: 20091204
  Receipt Date: 20091124
  Transmission Date: 20100525
  Serious: Yes (Hospitalization, Other)
  Sender: FDA-Public Use
  Company Number: US-PFIZER INC-2009196576

PATIENT
  Sex: Male
  Weight: 79.365 kg

DRUGS (2)
  1. DILANTIN [Suspect]
     Indication: CONVULSION
     Dosage: 50 MG, 3X/DAY
     Route: 048
     Dates: start: 20080303, end: 20080416
  2. PHENOBARBITAL TAB [Suspect]
     Indication: CONVULSION
     Dosage: 60 MG, 3X/DAY
     Dates: start: 20080410

REACTIONS (10)
  - ABSCESS LIMB [None]
  - ALANINE AMINOTRANSFERASE INCREASED [None]
  - ASPARTATE AMINOTRANSFERASE INCREASED [None]
  - BACTERAEMIA [None]
  - CELLULITIS [None]
  - EOSINOPHILIA [None]
  - ERYTHEMA MULTIFORME [None]
  - STEVENS-JOHNSON SYNDROME [None]
  - TACHYCARDIA [None]
  - VISUAL IMPAIRMENT [None]
